FAERS Safety Report 22525287 (Version 1)
Quarter: 2023Q2

REPORT INFORMATION
  Report Type: Spontaneous
  Country: KR (occurrence: KR)
  Receive Date: 20230606
  Receipt Date: 20230606
  Transmission Date: 20230721
  Serious: Yes (Hospitalization)
  Sender: FDA-Public Use
  Company Number: KR-ORGANON-O2305KOR003116

PATIENT
  Age: 39 Year
  Sex: Female
  Weight: 65.5 kg

DRUGS (18)
  1. COZAAR [Suspect]
     Active Substance: LOSARTAN POTASSIUM
     Indication: Essential hypertension
     Dosage: 1 FORMULATION, 1 DAY; DRUG SHAPE: FILM COATED TABLET
     Route: 048
     Dates: start: 20180619, end: 20181126
  2. SERTACONAZOLE NITRATE [Concomitant]
     Active Substance: SERTACONAZOLE NITRATE
     Indication: Dermatophytosis of nail
     Dosage: UNK, 0.5 DAY; DRUG SHAPE TEXT: SKIN CREAM; ROUTE: EXTERNAL USE
     Route: 061
     Dates: start: 20180530
  3. PREDNICARBATE [Concomitant]
     Active Substance: PREDNICARBATE
     Indication: Dermatitis contact
     Dosage: UNK, 0.5 DAY; DRUG SHAPE TEXT: SKIN CREAM; ROUTE: EXTERNAL USE
     Route: 061
  4. FOLIC ACID [Concomitant]
     Active Substance: FOLIC ACID
     Indication: Systemic lupus erythematosus
     Dosage: 1 FORMULATION, 1 DAY; DRUG SHAPE TEXT: UNCOATED TABLET
     Route: 048
     Dates: start: 1995
  5. PREDNISOLONE [Concomitant]
     Active Substance: PREDNISOLONE
     Indication: Systemic lupus erythematosus
     Dosage: 1 FORMULATION, 0.5 DAY; DRUG SHAPE TEXT: UNCOATED TABLET
     Route: 048
     Dates: start: 1995
  6. ATORVASTATIN CALCIUM [Concomitant]
     Active Substance: ATORVASTATIN CALCIUM
     Indication: Systemic lupus erythematosus
     Dosage: 1 FORMULATION, 1 DAY
     Route: 048
     Dates: start: 1995
  7. TRAMADOL HYDROCHLORIDE [Concomitant]
     Active Substance: TRAMADOL HYDROCHLORIDE
     Indication: Systemic lupus erythematosus
     Dosage: 1 FORMULATION, 0.5 DAY; DRUG SJHAPE TEXT: HARD CAPSULE, POWDER
     Route: 048
     Dates: start: 1995
  8. ENOXAPARIN SODIUM [Concomitant]
     Active Substance: ENOXAPARIN SODIUM
     Indication: Embolism venous
     Dosage: 1 FORMULATION, 1 DAY; DRUG SHAPE TEXT: SOLUTION INJECTION
     Route: 058
     Dates: start: 20180518
  9. LEVOTHYROXINE SODIUM [Concomitant]
     Active Substance: LEVOTHYROXINE SODIUM
     Indication: Hypothyroidism
     Dosage: 1 FORMULATION, 1 DAY; DRUG SHAPE TEXT: UNCOATED TABLET
     Route: 048
     Dates: start: 20140208
  10. OLMESARTAN MEDOXOMIL [Concomitant]
     Active Substance: OLMESARTAN MEDOXOMIL
     Indication: Essential hypertension
     Dosage: 1 FORMULATION, 1 DAY
     Route: 048
     Dates: start: 20180519, end: 20180618
  11. OLMESARTAN MEDOXOMIL [Concomitant]
     Active Substance: OLMESARTAN MEDOXOMIL
     Dosage: 1 FORMULATION, 1 DAY
     Route: 048
     Dates: start: 20181126
  12. HYDROCORTISONE SODIUM SUCCINATE [Concomitant]
     Active Substance: HYDROCORTISONE SODIUM SUCCINATE
     Indication: Rheumatoid arthritis
     Dosage: 0.5 FORMULATION, 1 DAY; ROUTE REPORTED AS VEIN; DRUG SHAPE TEXT: FREEZE DRIED (LUOPHILIZED) POWDER I
     Route: 042
     Dates: start: 20180617, end: 20180617
  13. HYDROCORTISONE SODIUM SUCCINATE [Concomitant]
     Active Substance: HYDROCORTISONE SODIUM SUCCINATE
     Dosage: 0.25 FORMULATION, 0.33 DAY; ROUTE REPORTED AS VEIN; DRUG SHAPE TEXT: FREEZE DRIED (LUOPHILIZED) POWD
     Route: 042
     Dates: start: 20180619, end: 20180619
  14. PREDNISOLONE ACETATE [Concomitant]
     Active Substance: PREDNISOLONE ACETATE
     Indication: Lacrimal disorder
     Dosage: 2 DROPS, 0.33 DAY; ROUTE REPORTED AS EYE; DRUG SHAPE TEXT: OPHTHALMIC SUSPENSION
     Route: 047
     Dates: start: 20180625, end: 20180628
  15. LEVOFLOXACIN HEMIHYDRATE [Concomitant]
     Active Substance: LEVOFLOXACIN
     Indication: Lacrimal disorder
     Dosage: 2 DROP, 0.33 DAY; ROUTE REPORTED AS EYE; DRUG SHAPE TEXT: OPHTHALMIC SOLUTION
     Route: 047
     Dates: start: 20180625, end: 20180628
  16. SODIUM HYALURONATE [Concomitant]
     Active Substance: HYALURONATE SODIUM
     Indication: Lacrimal disorder
     Dosage: 2 DROP, 0.2 DAY; ROUTE REPORTED AS EYE; DRUG SHAPE TEXT: OPHTHALMMIC SOLUTION
     Route: 047
     Dates: start: 20180628, end: 201807
  17. CYCLOSPORINE [Concomitant]
     Active Substance: CYCLOSPORINE
     Indication: Rheumatoid arthritis
     Dosage: 1 FORMULATION, 0.5 DAY; DRUG SHAPE TEXT: SOFT CAPSULES, SUSPENSION
     Route: 048
     Dates: start: 20180809
  18. TRIAMCINOLONE ACETONIDE [Concomitant]
     Active Substance: TRIAMCINOLONE ACETONIDE
     Indication: Rheumatoid arthritis
     Dosage: UNK, 1 DAY; ROUTE REPORTED AS MUSCLE; DRUG SHAPE TEXT: SUSPENSION INJECTION
     Route: 030
     Dates: start: 20181004, end: 20181004

REACTIONS (2)
  - Rheumatoid arthritis [Recovered/Resolved]
  - Stomatitis [Recovered/Resolved]
